FAERS Safety Report 10410709 (Version 1)
Quarter: 2014Q2

REPORT INFORMATION
  Report Type: Spontaneous
  Country: US (occurrence: None)
  Receive Date: 20140604
  Receipt Date: 20140604
  Transmission Date: 20141212
  Serious: Yes (Other)
  Sender: FDA-Public Use
  Company Number: 20090910CINRY1148

PATIENT
  Age: 30 Year
  Sex: Female
  Weight: 74.84 kg

DRUGS (5)
  1. CINRYZE [Suspect]
     Indication: HEREDITARY ANGIOEDEMA
     Route: 042
     Dates: start: 20090701
  2. CINRYZE [Suspect]
     Indication: PROPHYLAXIS
     Route: 042
     Dates: start: 20090701
  3. PRENATAL VITAMIN [Concomitant]
  4. LORAZEPAM [Concomitant]
  5. ALEVE [Concomitant]

REACTIONS (1)
  - Hereditary angioedema [None]
